FAERS Safety Report 6102663-1 (Version None)
Quarter: 2009Q1

REPORT INFORMATION
  Report Type: 
  Country: None (occurrence: None)
  Receive Date: 20090304
  Receipt Date: 20081125
  Transmission Date: 20090719
  Serious: No
  Sender: FDA-Public Use
  Company Number: A0758137A

PATIENT
  Age: 68 Year
  Sex: Female

DRUGS (6)
  1. REQUIP [Suspect]
     Indication: PARKINSON'S DISEASE
     Dosage: 3MG PER DAY
     Route: 048
     Dates: start: 20060201, end: 20080901
  2. REQUIP XL [Suspect]
     Indication: PARKINSON'S DISEASE
     Dosage: 4MG PER DAY
     Route: 048
     Dates: start: 20080901
  3. SOTALOL HCL [Concomitant]
  4. ASPIRIN [Concomitant]
  5. LEVODOPA [Concomitant]
  6. LISINOPRIL [Concomitant]

REACTIONS (3)
  - ALOPECIA [None]
  - INSOMNIA [None]
  - SEDATION [None]
